FAERS Safety Report 24563123 (Version 1)
Quarter: 2024Q4

REPORT INFORMATION
  Report Type: Report from Study
  Country: GB (occurrence: GB)
  Receive Date: 20241030
  Receipt Date: 20241030
  Transmission Date: 20250115
  Serious: Yes (Other)
  Sender: ROCHE
  Company Number: GB-ROCHE-10000115115

PATIENT

DRUGS (2)
  1. FARICIMAB [Suspect]
     Active Substance: FARICIMAB
     Indication: Neovascular age-related macular degeneration
     Route: 065
  2. FARICIMAB [Suspect]
     Active Substance: FARICIMAB
     Indication: Diabetic retinal oedema

REACTIONS (5)
  - Visual impairment [Unknown]
  - Cerebrovascular accident [Unknown]
  - Retinal detachment [Unknown]
  - Eye pain [Unknown]
  - Disease progression [Unknown]
